FAERS Safety Report 8496215 (Version 3)
Quarter: 2013Q3

REPORT INFORMATION
  Report Type: Spontaneous
  Country: BE (occurrence: BE)
  Receive Date: 20120405
  Receipt Date: 20130821
  Transmission Date: 20140515
  Serious: Yes (Hospitalization)
  Sender: FDA-Public Use
  Company Number: BE-GLAXOSMITHKLINE-B0792679A

PATIENT
  Age: 46 Year
  Sex: Female
  Weight: 55 kg

DRUGS (7)
  1. LAMBIPOL [Suspect]
     Indication: BIPOLAR DISORDER
     Dosage: 25MG PER DAY
     Route: 065
  2. ANAFRANIL [Concomitant]
     Route: 065
  3. TRAZODONE [Concomitant]
     Route: 065
  4. TEMESTA [Concomitant]
     Route: 065
  5. CARDIOASPIRINE [Concomitant]
     Route: 065
  6. MEDROL [Concomitant]
     Route: 065
  7. BISOPROLOL [Concomitant]
     Route: 065

REACTIONS (4)
  - Disseminated intravascular coagulation [Unknown]
  - Disseminated intravascular coagulation [Recovered/Resolved]
  - Septic shock [Recovered/Resolved]
  - Cardiac disorder [Unknown]
